FAERS Safety Report 20707983 (Version 1)
Quarter: 2022Q2

REPORT INFORMATION
  Report Type: Spontaneous
  Country: GB (occurrence: GB)
  Receive Date: 20220414
  Receipt Date: 20220414
  Transmission Date: 20220721
  Serious: Yes (Other)
  Sender: FDA-Public Use
  Company Number: GB-MHRA-TPP16272087C821402YC1648649367123

PATIENT
  Age: 72 Year
  Sex: Female
  Weight: 57 kg

DRUGS (3)
  1. NITROFURANTOIN [Suspect]
     Active Substance: NITROFURANTOIN
     Indication: Ill-defined disorder
     Dosage: UNK
     Route: 065
     Dates: start: 20220330
  2. AMLODIPINE [Concomitant]
     Active Substance: AMLODIPINE BESYLATE
     Indication: Ill-defined disorder
     Dosage: UNK (TAKE ONE DAILY)
     Route: 065
     Dates: start: 20210920
  3. NITROFURANTOIN [Concomitant]
     Active Substance: NITROFURANTOIN
     Indication: Ill-defined disorder
     Dosage: TAKE ONE CAPSULE TWICE DAILY FOR 3 DAYS
     Route: 065
     Dates: start: 20220228, end: 20220303

REACTIONS (1)
  - Vasculitic rash [Recovered/Resolved]

NARRATIVE: CASE EVENT DATE: 20220330
